FAERS Safety Report 6276141-3 (Version None)
Quarter: 2009Q3

REPORT INFORMATION
  Report Type: 
  Country: None (occurrence: None)
  Receive Date: 20090720
  Receipt Date: 20090720
  Transmission Date: 20100115
  Serious: Yes (Other)
  Sender: FDA-Public Use
  Company Number: None

PATIENT
  Sex: Male
  Weight: 83.9154 kg

DRUGS (1)
  1. ROGAINE 5 [Suspect]
     Dates: start: 20060601

REACTIONS (3)
  - ALOPECIA [None]
  - HAIR COLOUR CHANGES [None]
  - MADAROSIS [None]
